FAERS Safety Report 8815348 (Version 1)
Quarter: 2012Q4

REPORT INFORMATION
  Report Type: 
  Country: US (occurrence: US)
  Receive Date: 20120928
  Receipt Date: 20120928
  Transmission Date: 20130627
  Serious: No
  Sender: FDA-Public Use
  Company Number: US-ASTRAZENECA-2012SE72853

PATIENT
  Sex: Female

DRUGS (1)
  1. SYMBICORT PMDI [Suspect]
     Dosage: DOSE, FREQUENCY UNKNOWN
     Route: 055

REACTIONS (2)
  - Multiple allergies [Unknown]
  - Sinusitis [Unknown]
